FAERS Safety Report 8859068 (Version 2)
Quarter: 2012Q4

REPORT INFORMATION
  Report Type: 
  Country: US (occurrence: US)
  Receive Date: 20121024
  Receipt Date: 20121108
  Transmission Date: 20130627
  Serious: No
  Sender: FDA-Public Use
  Company Number: US-PFIZER INC-2012261015

PATIENT
  Age: 35 Year
  Sex: Male
  Weight: 54.4 kg

DRUGS (2)
  1. LEVOXYL [Suspect]
     Indication: HYPOTHYROIDISM
     Dosage: 100 ug, 1x/day
  2. TESTOSTERONE [Concomitant]
     Dosage: 2.5 mg, 1x/day

REACTIONS (2)
  - Blood thyroid stimulating hormone increased [Not Recovered/Not Resolved]
  - Feeling abnormal [Unknown]
